FAERS Safety Report 5401073-X (Version None)
Quarter: 2007Q3

REPORT INFORMATION
  Report Type: 
  Country: None (occurrence: None)
  Receive Date: 20070731
  Receipt Date: 20070719
  Transmission Date: 20080115
  Serious: Yes (Hospitalization, Other)
  Sender: FDA-Public Use
  Company Number: PT-JNJFOC-20070705039

PATIENT
  Sex: Female
  Weight: 64 kg

DRUGS (3)
  1. TOPIRAMATE [Suspect]
     Indication: MIGRAINE PROPHYLAXIS
     Route: 048
  2. DIAZEPAM [Concomitant]
     Indication: DRUG USE FOR UNKNOWN INDICATION
     Route: 048
  3. SERTRALINE [Concomitant]
     Indication: DRUG USE FOR UNKNOWN INDICATION
     Route: 048

REACTIONS (5)
  - ANGLE CLOSURE GLAUCOMA [None]
  - BLINDNESS TRANSIENT [None]
  - CHOROIDAL DETACHMENT [None]
  - EYE OEDEMA [None]
  - INTRAOCULAR PRESSURE INCREASED [None]
